FAERS Safety Report 8147028-6 (Version None)
Quarter: 2012Q1

REPORT INFORMATION
  Report Type: 
  Country: None (occurrence: None)
  Receive Date: 20120218
  Receipt Date: 20110715
  Transmission Date: 20120608
  Serious: No
  Sender: FDA-Public Use
  Company Number: US-ALLERGAN-1100055US

PATIENT
  Age: 52 Year
  Sex: Female

DRUGS (1)
  1. BOTOX COSMETIC [Suspect]
     Indication: SKIN WRINKLING
     Dosage: 20 UNITS, SINGLE
     Route: 030
     Dates: start: 20101123, end: 20101123

REACTIONS (17)
  - SKIN DISCOLOURATION [None]
  - SENSORY DISTURBANCE [None]
  - SKIN WRINKLING [None]
  - ERYTHEMA [None]
  - VIITH NERVE PARALYSIS [None]
  - DRY EYE [None]
  - PARAESTHESIA [None]
  - SWELLING FACE [None]
  - LIP SWELLING [None]
  - NASAL OEDEMA [None]
  - VISION BLURRED [None]
  - HYPERSENSITIVITY [None]
  - HYPERTENSION [None]
  - PAIN [None]
  - HEADACHE [None]
  - RASH [None]
  - VISUAL IMPAIRMENT [None]
